FAERS Safety Report 7296341-3 (Version None)
Quarter: 2011Q1

REPORT INFORMATION
  Report Type: 
  Country: None (occurrence: None)
  Receive Date: 20110216
  Receipt Date: 20110210
  Transmission Date: 20110831
  Serious: Yes (Hospitalization)
  Sender: FDA-Public Use
  Company Number: CA-JNJFOC-20110203682

PATIENT
  Sex: Male
  Weight: 101.7 kg

DRUGS (9)
  1. METOPROLOL [Concomitant]
     Route: 048
  2. DICLOFENAC SODIUM SR [Concomitant]
     Route: 048
  3. PLAVIX [Concomitant]
     Route: 048
  4. LIPITOR [Concomitant]
     Route: 048
  5. REMICADE [Suspect]
     Indication: RHEUMATOID ARTHRITIS
     Route: 042
  6. AMLODIPINE [Concomitant]
     Route: 048
  7. ENALAPRIL [Concomitant]
     Route: 048
  8. HYDROCHLOROTHIAZIDE [Concomitant]
     Route: 048
  9. ASPIRIN [Concomitant]
     Route: 048

REACTIONS (1)
  - MYOCARDIAL INFARCTION [None]
